FAERS Safety Report 5108661-9 (Version None)
Quarter: 2006Q3

REPORT INFORMATION
  Report Type: 
  Country: None (occurrence: None)
  Receive Date: 20060915
  Receipt Date: 20060905
  Transmission Date: 20061208
  Serious: Yes (Hospitalization, Other)
  Sender: FDA-Public Use
  Company Number: PHBS2006CA04560

PATIENT
  Age: 6 Year
  Sex: Female
  Weight: 24.1 kg

DRUGS (6)
  1. METOPROLOL TARTRATE [Suspect]
     Indication: HYPERTENSION
     Dosage: 25 MG, ORAL
     Route: 048
     Dates: start: 20000901
  2. ENALAPRIL MALEATE [Suspect]
     Dosage: 1 MG, BID, ORAL
     Route: 048
  3. HYDROCHLOROTHIAZIDE [Suspect]
     Indication: HYPERTENSION
  4. AMLODIPINE [Suspect]
     Dosage: 3 MG DAILY, ORAL
     Route: 048
  5. SPIRONOLACTONE [Suspect]
     Dosage: 12.5 MG, BID, ORAL
     Route: 048
  6. MINOXIDIL [Suspect]

REACTIONS (13)
  - AORTIC ANEURYSM REPAIR [None]
  - ARTERIAL BYPASS OPERATION [None]
  - BLOOD PRESSURE INADEQUATELY CONTROLLED [None]
  - CONDITION AGGRAVATED [None]
  - DRUG INEFFECTIVE [None]
  - DYSPLASIA [None]
  - FIBROMUSCULAR DYSPLASIA [None]
  - HYPERTRICHOSIS [None]
  - RENAL ARTERY STENOSIS [None]
  - RENAL FAILURE ACUTE [None]
  - RENAL TRANSPLANT [None]
  - VASCULAR PSEUDOANEURYSM [None]
  - VENTRICULAR HYPERTROPHY [None]
